FAERS Safety Report 8229780-4 (Version None)
Quarter: 2012Q1

REPORT INFORMATION
  Report Type: 
  Country: None (occurrence: None)
  Receive Date: 20120322
  Receipt Date: 20120319
  Transmission Date: 20120608
  Serious: Yes (Life-Threatening, Hospitalization)
  Sender: FDA-Public Use
  Company Number: DE-ASTRAZENECA-2012SE13074

PATIENT
  Age: 23420 Day
  Sex: Female
  Weight: 105 kg

DRUGS (3)
  1. IBANDRONATE SODIUM [Concomitant]
     Indication: METASTASES TO BONE
     Route: 042
     Dates: start: 20090101, end: 20110701
  2. FASLODEX [Suspect]
     Indication: BREAST CANCER
     Route: 030
     Dates: start: 20110719, end: 20111213
  3. ZOMETA [Concomitant]
     Indication: METASTASES TO BONE
     Route: 042
     Dates: start: 20110816

REACTIONS (4)
  - SEPTIC SHOCK [None]
  - CYSTITIS [None]
  - HYDRONEPHROSIS [None]
  - INTRACARDIAC THROMBUS [None]
